FAERS Safety Report 19164558 (Version 7)
Quarter: 2022Q2

REPORT INFORMATION
  Report Type: Report from Study
  Country: DO (occurrence: DO)
  Receive Date: 20210421
  Receipt Date: 20220506
  Transmission Date: 20220721
  Serious: Yes (Other)
  Sender: FDA-Public Use
  Company Number: NVSC2020DO343109

PATIENT
  Age: 52 Year
  Sex: Female

DRUGS (7)
  1. ELTROMBOPAG OLAMINE [Suspect]
     Active Substance: ELTROMBOPAG OLAMINE
     Indication: Immune thrombocytopenia
     Dosage: 50 MG, QD
     Route: 048
     Dates: start: 202003
  2. ELTROMBOPAG OLAMINE [Suspect]
     Active Substance: ELTROMBOPAG OLAMINE
     Dosage: 50 MG, QD
     Route: 048
     Dates: start: 20200512
  3. ELTROMBOPAG OLAMINE [Suspect]
     Active Substance: ELTROMBOPAG OLAMINE
     Dosage: 25 MG, QD (TABLET)
     Route: 048
     Dates: start: 20200812, end: 20210304
  4. ELTROMBOPAG OLAMINE [Suspect]
     Active Substance: ELTROMBOPAG OLAMINE
     Dosage: 25 MG, QD
     Route: 048
  5. ELTROMBOPAG OLAMINE [Suspect]
     Active Substance: ELTROMBOPAG OLAMINE
     Dosage: 50 MG, QD
     Route: 048
     Dates: start: 2020, end: 20220406
  6. PREDNISONE [Concomitant]
     Active Substance: PREDNISONE
     Indication: Product used for unknown indication
     Dosage: UNK
     Route: 065
  7. METHYLCOBALAMIN [Concomitant]
     Active Substance: METHYLCOBALAMIN
     Indication: Product used for unknown indication
     Dosage: UNK
     Route: 065

REACTIONS (13)
  - Myelodysplastic syndrome [Unknown]
  - Platelet count decreased [Unknown]
  - Contusion [Unknown]
  - Haematoma [Unknown]
  - Platelet count abnormal [Unknown]
  - Mood swings [Unknown]
  - Asthenia [Unknown]
  - Anxiety [Unknown]
  - Insomnia [Unknown]
  - Decreased appetite [Unknown]
  - Hypersensitivity [Unknown]
  - Mouth swelling [Unknown]
  - Feeling of despair [Unknown]

NARRATIVE: CASE EVENT DATE: 20201221
